FAERS Safety Report 16633278 (Version 1)
Quarter: 2019Q3

REPORT INFORMATION
  Report Type: Spontaneous
  Country: US (occurrence: US)
  Receive Date: 20190725
  Receipt Date: 20190725
  Transmission Date: 20191004
  Serious: No
  Sender: FDA-Public Use
  Company Number: US-TARO-2018TAR00784

PATIENT
  Sex: Male

DRUGS (2)
  1. FLUOCINONIDE CREAM USP 0.05% [Suspect]
     Active Substance: FLUOCINONIDE
     Dosage: APPLY 2X/DAY EACH MORNING AND EVENING FOR 5 DAYS, STOP APPLYING FOR TWO DAYS AND CONTINUE THIS PATTE
     Route: 061
     Dates: start: 2018
  2. FLUOCINONIDE CREAM USP 0.05% [Suspect]
     Active Substance: FLUOCINONIDE
     Indication: ECZEMA
     Dosage: APPLY 2X/DAY EACH MORNING AND EVENING FOR 5 DAYS, STOP APPLYING FOR TWO DAYS AND REPEAT
     Route: 061
     Dates: end: 2018

REACTIONS (2)
  - Therapeutic product effect incomplete [Not Recovered/Not Resolved]
  - Inappropriate schedule of product administration [Not Recovered/Not Resolved]
